FAERS Safety Report 8519632-4 (Version None)
Quarter: 2012Q3

REPORT INFORMATION
  Report Type: 
  Country: None (occurrence: None)
  Receive Date: 20120718
  Receipt Date: 20120713
  Transmission Date: 20120928
  Serious: Yes (Other)
  Sender: FDA-Public Use
  Company Number: US-ALLERGAN-1209760US

PATIENT
  Age: 30 Year
  Sex: Female

DRUGS (2)
  1. BOTOX COSMETIC [Suspect]
     Indication: SKIN WRINKLING
     Dosage: 40 UNITS, SINGLE
     Route: 030
     Dates: start: 20120712, end: 20120712
  2. BOTOX COSMETIC [Suspect]

REACTIONS (4)
  - LOSS OF CONSCIOUSNESS [None]
  - NAUSEA [None]
  - DIZZINESS [None]
  - ROAD TRAFFIC ACCIDENT [None]
